FAERS Safety Report 6570087-9 (Version None)
Quarter: 2010Q1

REPORT INFORMATION
  Report Type: 
  Country: None (occurrence: None)
  Receive Date: 20100125
  Receipt Date: 20090924
  Transmission Date: 20100710
  Serious: Yes (Hospitalization)
  Sender: FDA-Public Use
  Company Number: 2009BI028459

PATIENT
  Age: 61 Year
  Sex: Male

DRUGS (12)
  1. TYSABRI [Suspect]
     Indication: MULTIPLE SCLEROSIS
     Dosage: 300 MG; QM; IV
     Route: 042
     Dates: start: 20090121, end: 20090617
  2. MECLIZINE [Concomitant]
  3. PREDNISONE [Concomitant]
  4. BACLOFEN [Concomitant]
  5. BUMEX [Concomitant]
  6. KLONOPIN [Concomitant]
  7. PROZAC [Concomitant]
  8. ADDERALL XR 10 [Concomitant]
  9. DURAGESIC-100 [Concomitant]
  10. GABAPENTIN [Concomitant]
  11. VICODIN [Concomitant]
  12. BETASERON [Concomitant]

REACTIONS (5)
  - ASTHENIA [None]
  - CHRONIC OBSTRUCTIVE PULMONARY DISEASE [None]
  - LEUKOCYTOSIS [None]
  - MULTIPLE SCLEROSIS RELAPSE [None]
  - TREATMENT FAILURE [None]
